FAERS Safety Report 13185557 (Version 2)
Quarter: 2017Q1

REPORT INFORMATION
  Report Type: Spontaneous
  Country: US (occurrence: US)
  Receive Date: 20170203
  Receipt Date: 20170214
  Transmission Date: 20170428
  Serious: Yes (Other)
  Sender: FDA-Public Use
  Company Number: US-COL_25683_2017

PATIENT
  Sex: Female

DRUGS (1)
  1. COLGATE CAVITY PROTECTION GREAT REGULAR FLAVOR [Suspect]
     Active Substance: SODIUM MONOFLUOROPHOSPHATE
     Indication: PRODUCT USED FOR UNKNOWN INDICATION
     Dosage: NI/NI/

REACTIONS (1)
  - Anaphylactic reaction [Unknown]
